FAERS Safety Report 4622597-9 (Version None)
Quarter: 2005Q1

REPORT INFORMATION
  Report Type: 
  Country: None (occurrence: None)
  Receive Date: 20050330
  Receipt Date: 20050317
  Transmission Date: 20050727
  Serious: Yes (Disabling, Other)
  Sender: FDA-Public Use
  Company Number: BE-JNJFOC-20050301082

PATIENT
  Sex: Female

DRUGS (3)
  1. TOPAMAX [Suspect]
     Indication: DRUG USE FOR UNKNOWN INDICATION
     Route: 049
  2. PROGYNOVA [Concomitant]
     Route: 065
  3. DUPHASTON [Concomitant]
     Route: 065

REACTIONS (3)
  - GLOMERULONEPHRITIS CHRONIC [None]
  - RENAL DISORDER [None]
  - RENAL PAIN [None]
